FAERS Safety Report 9939346 (Version 1)
Quarter: 2014Q1

REPORT INFORMATION
  Report Type: Report from Study
  Country: US (occurrence: US)
  Receive Date: 20140303
  Receipt Date: 20140303
  Transmission Date: 20141002
  Serious: No
  Sender: FDA-Public Use
  Company Number: US-ABBVIE-13P-163-1034453-00

PATIENT
  Age: 57 Year
  Sex: Female
  Weight: 70.82 kg

DRUGS (4)
  1. HUMIRA [Suspect]
     Indication: RHEUMATOID ARTHRITIS
     Dosage: ONCE
     Dates: start: 20121125, end: 20121125
  2. HUMIRA [Suspect]
     Dosage: ONCE
     Dates: start: 20121209, end: 20121209
  3. ARAVA [Concomitant]
     Indication: RHEUMATOID ARTHRITIS
  4. ORENCIA [Concomitant]
     Indication: PRODUCT USED FOR UNKNOWN INDICATION

REACTIONS (2)
  - Drug effect incomplete [Recovered/Resolved]
  - Drug ineffective [Recovered/Resolved]
